FAERS Safety Report 25989985 (Version 1)
Quarter: 2025Q4

REPORT INFORMATION
  Report Type: Spontaneous
  Country: US (occurrence: None)
  Receive Date: 20251101
  Receipt Date: 20251101
  Transmission Date: 20260118
  Serious: Yes (Other)
  Sender: FDA-CTU
  Company Number: None

PATIENT
  Age: 62 Year
  Sex: Female
  Weight: 83.25 kg

DRUGS (11)
  1. YESCARTA [Suspect]
     Active Substance: AXICABTAGENE CILOLEUCEL
     Indication: Diffuse large B-cell lymphoma
     Dosage: OTHER FREQUENCY : ONCE;?STRENGTH: MAXIMUM 2X10^^8 DF DOSAGE FORM
     Route: 042
     Dates: start: 20230925, end: 20230925
  2. ACALABRUTINIB [Suspect]
     Active Substance: ACALABRUTINIB
     Dates: start: 20230828, end: 20231211
  3. RITUXIMAB [Suspect]
     Active Substance: RITUXIMAB
  4. CYCLOPHOSPHAMIDE [Suspect]
     Active Substance: CYCLOPHOSPHAMIDE
  5. DOXORUBICIN [Suspect]
     Active Substance: DOXORUBICIN
  6. VINCRISTINE [Suspect]
     Active Substance: VINCRISTINE
  7. PREDNISONE [Suspect]
     Active Substance: PREDNISONE
  8. GEMCITABINE [Suspect]
     Active Substance: GEMCITABINE
  9. DEXAMETHASONE [Suspect]
     Active Substance: DEXAMETHASONE
  10. CISPLATIN [Suspect]
     Active Substance: CISPLATIN
  11. FLUDARABINE [Suspect]
     Active Substance: FLUDARABINE PHOSPHATE

REACTIONS (4)
  - Cytokine release syndrome [None]
  - Appendiceal mucinous neoplasm [None]
  - Diffuse large B-cell lymphoma refractory [None]
  - Disease progression [None]

NARRATIVE: CASE EVENT DATE: 20250729
